FAERS Safety Report 15470063 (Version 4)
Quarter: 2019Q2

REPORT INFORMATION
  Report Type: Report from Study
  Country: US (occurrence: US)
  Receive Date: 20181005
  Receipt Date: 20190528
  Transmission Date: 20190711
  Serious: Yes (Life-Threatening, Hospitalization)
  Sender: FDA-Public Use
  Company Number: US-ACTELION-A-US2018-179647

PATIENT
  Age: 2 Month
  Sex: Female

DRUGS (8)
  1. BOSENTAN TABLET 32 MG PED US [Suspect]
     Active Substance: BOSENTAN
     Indication: PULMONARY ARTERIAL HYPERTENSION
     Dosage: 8 MG, BID (G-TUBE)
     Route: 049
     Dates: start: 20180810
  2. ENALAPRIL [Concomitant]
     Active Substance: ENALAPRIL
     Dosage: 0.7 MG, Q12HRS VIA GT
     Route: 049
  3. SILDENAFIL. [Concomitant]
     Active Substance: SILDENAFIL
     Dosage: 4 MG, Q6HRS
     Route: 049
  4. AMIODARONE [Concomitant]
     Active Substance: AMIODARONE
     Dosage: 30 MG, QD VIA GT
     Route: 049
  5. ASPIRIN. [Concomitant]
     Active Substance: ASPIRIN
     Dosage: 20.25 MG, QD
     Route: 049
  6. PREVACID [Concomitant]
     Active Substance: LANSOPRAZOLE
     Dosage: 6 MG, QD
     Route: 049
  7. BOSENTAN TABLET 32 MG PED US [Suspect]
     Active Substance: BOSENTAN
     Dosage: 32 MG
     Route: 049
  8. DIGOXIN. [Concomitant]
     Active Substance: DIGOXIN
     Dosage: 10 MG, Q12HRS VIA GT
     Route: 049

REACTIONS (6)
  - Cardiac aneurysm [Unknown]
  - Aneurysm repair [Unknown]
  - Cardiac operation [Recovering/Resolving]
  - Tricuspid valve repair [Unknown]
  - Pulmonary artery therapeutic procedure [Unknown]
  - Therapeutic procedure [Recovered/Resolved]

NARRATIVE: CASE EVENT DATE: 20180919
